FAERS Safety Report 23492226 (Version 1)
Quarter: 2024Q1

REPORT INFORMATION
  Report Type: Spontaneous
  Country: FR (occurrence: FR)
  Receive Date: 20240207
  Receipt Date: 20240207
  Transmission Date: 20240410
  Serious: Yes (Other)
  Sender: FDA-Public Use
  Company Number: None

PATIENT
  Age: 67 Year
  Sex: Female

DRUGS (1)
  1. VORICONAZOLE [Suspect]
     Active Substance: VORICONAZOLE
     Indication: Aspergillus infection
     Dosage: 200 MG MATIN ET SOIR
     Route: 042
     Dates: start: 20230630, end: 20230809

REACTIONS (1)
  - Koebner phenomenon [Recovered/Resolved]

NARRATIVE: CASE EVENT DATE: 20230721
